FAERS Safety Report 4593794-6 (Version None)
Quarter: 2005Q1

REPORT INFORMATION
  Report Type: 
  Country: None (occurrence: None)
  Receive Date: 20050301
  Receipt Date: 20050221
  Transmission Date: 20050727
  Serious: Yes (Other)
  Sender: FDA-Public Use
  Company Number: PHBS2005FR02813

PATIENT
  Age: 71 Year
  Sex: Female

DRUGS (1)
  1. CYCLOSPORINE [Suspect]
     Indication: LIVER TRANSPLANT
     Route: 065

REACTIONS (3)
  - ERYTHEMA [None]
  - GRANULOMA ANNULARE [None]
  - RASH PAPULAR [None]
